FAERS Safety Report 11820471 (Version 2)
Quarter: 2016Q3

REPORT INFORMATION
  Report Type: Spontaneous
  Country: US (occurrence: US)
  Receive Date: 20151210
  Receipt Date: 20160725
  Transmission Date: 20161109
  Serious: Yes (Hospitalization)
  Sender: FDA-Public Use
  Company Number: US-JNJFOC-20150701985

PATIENT
  Age: 74 Year
  Sex: Female

DRUGS (11)
  1. IMBRUVICA [Suspect]
     Active Substance: IBRUTINIB
     Indication: CHRONIC LYMPHOCYTIC LEUKAEMIA
     Route: 048
     Dates: start: 20150622
  2. ULORIC [Concomitant]
     Active Substance: FEBUXOSTAT
  3. CIPRO [Concomitant]
     Active Substance: CIPROFLOXACIN HYDROCHLORIDE
  4. SYNTHROID [Concomitant]
     Active Substance: LEVOTHYROXINE SODIUM
  5. MEDROL [Concomitant]
     Active Substance: METHYLPREDNISOLONE
  6. TORSEMIDE. [Concomitant]
     Active Substance: TORSEMIDE
  7. KLOR-CON [Concomitant]
     Active Substance: POTASSIUM CHLORIDE
  8. IMBRUVICA [Suspect]
     Active Substance: IBRUTINIB
     Indication: CHRONIC LYMPHOCYTIC LEUKAEMIA
     Route: 048
     Dates: start: 20150402, end: 20150616
  9. LISINOPRIL. [Concomitant]
     Active Substance: LISINOPRIL
  10. KEFLEX [Concomitant]
     Active Substance: CEPHALEXIN
  11. NOVOLOG [Concomitant]
     Active Substance: INSULIN ASPART
     Route: 058

REACTIONS (3)
  - Muscle spasms [Not Recovered/Not Resolved]
  - Myalgia [Not Recovered/Not Resolved]
  - Injection site bruising [Not Recovered/Not Resolved]

NARRATIVE: CASE EVENT DATE: 20150402
